FAERS Safety Report 19117458 (Version 1)
Quarter: 2021Q2

REPORT INFORMATION
  Report Type: Spontaneous
  Country: US (occurrence: US)
  Receive Date: 20210409
  Receipt Date: 20210409
  Transmission Date: 20210717
  Serious: No
  Sender: FDA-Public Use
  Company Number: US-SA-2021SA115097

PATIENT
  Sex: Female
  Weight: 106.5 kg

DRUGS (1)
  1. CERDELGA [Suspect]
     Active Substance: ELIGLUSTAT
     Indication: GAUCHER^S DISEASE
     Dosage: UNK, BID
     Route: 048
     Dates: start: 20191202

REACTIONS (1)
  - Weight increased [Unknown]
